FAERS Safety Report 23974566 (Version 1)
Quarter: 2024Q2

REPORT INFORMATION
  Report Type: Spontaneous
  Country: US (occurrence: US)
  Receive Date: 20240614
  Receipt Date: 20240614
  Transmission Date: 20240716
  Serious: No
  Sender: FDA-Public Use
  Company Number: US-STRIDES ARCOLAB LIMITED-2024SP004736

PATIENT

DRUGS (14)
  1. DOXORUBICIN [Suspect]
     Active Substance: DOXORUBICIN
     Indication: Triple negative breast cancer
     Dosage: UNK, CYCLICAL (EVERY TWO WEEKS FOR 4 CYCLES)
     Route: 065
  2. DOXORUBICIN [Suspect]
     Active Substance: DOXORUBICIN
     Indication: Intraductal proliferative breast lesion
  3. HYDROCORTISONE [Suspect]
     Active Substance: HYDROCORTISONE\HYDROCORTISONE ACETATE
     Indication: Eczema
     Dosage: UNK, BID (CREAM)
     Route: 065
  4. HYDROCORTISONE [Suspect]
     Active Substance: HYDROCORTISONE\HYDROCORTISONE ACETATE
     Dosage: UNK, QD (CREAM)
     Route: 065
  5. TRIAMCINOLONE [Suspect]
     Active Substance: TRIAMCINOLONE
     Indication: Eczema
     Dosage: UNK, BID
     Route: 065
  6. PEMBROLIZUMAB [Concomitant]
     Active Substance: PEMBROLIZUMAB
     Indication: Triple negative breast cancer
     Dosage: UNK, INFUSION (EVERY THREE WEEKS FOR 12 CYCLES)
     Route: 065
  7. PEMBROLIZUMAB [Concomitant]
     Active Substance: PEMBROLIZUMAB
     Indication: Intraductal proliferative breast lesion
     Dosage: UNK
     Route: 065
  8. BETAMETHASONE DIPROPIONATE [Concomitant]
     Active Substance: BETAMETHASONE DIPROPIONATE
     Indication: Eczema
     Dosage: UNK
     Route: 061
  9. PACLITAXEL [Concomitant]
     Active Substance: PACLITAXEL
     Indication: Triple negative breast cancer
     Dosage: UNK, CYCLICAL (WEEKLY FOR 12 CYCLES )
     Route: 065
  10. PACLITAXEL [Concomitant]
     Active Substance: PACLITAXEL
     Indication: Intraductal proliferative breast lesion
  11. CARBOPLATIN [Concomitant]
     Active Substance: CARBOPLATIN
     Indication: Triple negative breast cancer
     Dosage: UNK, CYCLICAL (WEEKLY FOR 12 CYCLES)
     Route: 065
  12. CARBOPLATIN [Concomitant]
     Active Substance: CARBOPLATIN
     Indication: Intraductal proliferative breast lesion
  13. CYCLOPHOSPHAMIDE [Concomitant]
     Active Substance: CYCLOPHOSPHAMIDE
     Indication: Triple negative breast cancer
     Dosage: UNK, CYCLICAL (EVERY 2 WEEKS FOR 4 CYCLES)
     Route: 065
  14. CYCLOPHOSPHAMIDE [Concomitant]
     Active Substance: CYCLOPHOSPHAMIDE
     Indication: Intraductal proliferative breast lesion

REACTIONS (2)
  - Palmar-plantar erythrodysaesthesia syndrome [Recovered/Resolved]
  - Drug ineffective [Unknown]
